FAERS Safety Report 5933296-5 (Version None)
Quarter: 2008Q4

REPORT INFORMATION
  Report Type: 
  Country: None (occurrence: None)
  Receive Date: 20081028
  Receipt Date: 20081023
  Transmission Date: 20090506
  Serious: No
  Sender: FDA-Public Use
  Company Number: US-B.I. PHARMACEUTICALS,INC./RIDGEFIELD-2008-BP-15680BP

PATIENT
  Sex: Female

DRUGS (7)
  1. MICARDIS [Suspect]
     Indication: BLOOD PRESSURE INCREASED
     Dosage: 40MG
     Dates: start: 20080818
  2. NEXIUM [Concomitant]
     Indication: GASTROOESOPHAGEAL REFLUX DISEASE
  3. VITAMIN D [Concomitant]
  4. PROZAC [Concomitant]
     Dosage: 10MG
  5. XANAX [Concomitant]
     Dosage: 10MG
  6. ATENOLOL [Concomitant]
  7. WELCHOL [Concomitant]

REACTIONS (1)
  - DYSPNOEA [None]
